FAERS Safety Report 6434872-6 (Version None)
Quarter: 2009Q4

REPORT INFORMATION
  Report Type: 
  Country: None (occurrence: None)
  Receive Date: 20091109
  Receipt Date: 20091109
  Transmission Date: 20100525
  Serious: Yes (Life-Threatening, Hospitalization)
  Sender: FDA-Public Use
  Company Number: None

PATIENT
  Age: 44 Year
  Sex: Female
  Weight: 74.8435 kg

DRUGS (3)
  1. YAZ [Suspect]
     Indication: ACNE
     Dosage: 1 DAILY
     Dates: start: 20070120, end: 20070409
  2. YAZ [Suspect]
     Indication: MENORRHAGIA
     Dosage: 1 DAILY
     Dates: start: 20070120, end: 20070409
  3. YAZ [Suspect]
     Indication: MUSCLE SPASMS
     Dosage: 1 DAILY
     Dates: start: 20070120, end: 20070409

REACTIONS (2)
  - DEEP VEIN THROMBOSIS [None]
  - PULMONARY EMBOLISM [None]
